FAERS Safety Report 6234849-X (Version None)
Quarter: 2009Q2

REPORT INFORMATION
  Report Type: 
  Country: None (occurrence: None)
  Receive Date: 20090618
  Receipt Date: 20090605
  Transmission Date: 20091009
  Serious: Yes (Hospitalization)
  Sender: FDA-Public Use
  Company Number: FR-MERCK-0906FRA00019

PATIENT
  Age: 81 Year
  Sex: Male

DRUGS (9)
  1. ZETIA [Suspect]
     Indication: DYSLIPIDAEMIA
     Route: 048
     Dates: end: 20090201
  2. FLUINDIONE [Suspect]
     Indication: PHLEBITIS
     Route: 048
     Dates: start: 20080201, end: 20081101
  3. FLUINDIONE [Suspect]
     Route: 048
     Dates: start: 20081201, end: 20090301
  4. AMOXICILLIN [Suspect]
     Indication: LYMPHANGITIS
     Route: 048
     Dates: start: 20090117, end: 20090207
  5. PRISTINAMYCIN [Suspect]
     Indication: LYMPHANGITIS
     Route: 065
     Dates: start: 20090105, end: 20090113
  6. AMLODIPINE BESYLATE [Suspect]
     Indication: HYPERTENSION
     Route: 048
     Dates: end: 20090201
  7. TRANDOLAPRIL [Suspect]
     Indication: HYPERTENSION
     Route: 048
  8. ACETAMINOPHEN [Concomitant]
     Route: 065
  9. BISOPROLOL FUMARATE [Concomitant]
     Route: 065

REACTIONS (1)
  - HEPATITIS CHOLESTATIC [None]
